FAERS Safety Report 20852379 (Version 3)
Quarter: 2022Q2

REPORT INFORMATION
  Report Type: Spontaneous
  Country: RO (occurrence: RO)
  Receive Date: 20220520
  Receipt Date: 20220606
  Transmission Date: 20220721
  Serious: Yes (Hospitalization, Other)
  Sender: FDA-Public Use
  Company Number: RO-MEDO2008-L202204015

PATIENT
  Age: 61 Year
  Sex: Male

DRUGS (23)
  1. LINEZOLID [Suspect]
     Active Substance: LINEZOLID
     Indication: Klebsiella infection
     Dosage: UNK
     Route: 065
     Dates: start: 20210419, end: 20210504
  2. LINEZOLID [Suspect]
     Active Substance: LINEZOLID
     Indication: Pneumonia
  3. LINEZOLID [Suspect]
     Active Substance: LINEZOLID
     Indication: Evidence based treatment
  4. MEROPENEM [Suspect]
     Active Substance: MEROPENEM
     Indication: Evidence based treatment
     Dosage: UNK
     Route: 065
     Dates: start: 20210419, end: 202105
  5. AVIBACTAM SODIUM\CEFTAZIDIME [Suspect]
     Active Substance: AVIBACTAM SODIUM\CEFTAZIDIME
     Indication: Bacterial infection
     Dosage: UNK
     Route: 065
     Dates: start: 202105, end: 2021
  6. AMPICILLIN [Suspect]
     Active Substance: AMPICILLIN
     Indication: Bacterial infection
     Dosage: UNK
     Route: 065
     Dates: start: 202105, end: 20210602
  7. AMPICILLIN [Suspect]
     Active Substance: AMPICILLIN
     Dosage: UNK
     Route: 065
     Dates: start: 20210602, end: 20210616
  8. AMPICILLIN [Suspect]
     Active Substance: AMPICILLIN
     Dosage: UNK
     Route: 065
     Dates: start: 20210616, end: 20210624
  9. ANIDULAFUNGIN [Suspect]
     Active Substance: ANIDULAFUNGIN
     Indication: Candida infection
     Dosage: UNK
     Route: 065
     Dates: start: 202104, end: 2021
  10. COLISTIN [Suspect]
     Active Substance: COLISTIN
     Indication: Evidence based treatment
     Dosage: UNK
     Route: 065
     Dates: start: 20210506, end: 20210602
  11. COLISTIN [Suspect]
     Active Substance: COLISTIN
     Dosage: UNK
     Route: 065
     Dates: start: 20210616, end: 20210624
  12. COLISTIN [Suspect]
     Active Substance: COLISTIN
     Dosage: UNK
     Route: 065
     Dates: start: 20210602, end: 20210616
  13. VANCOMYCIN [Suspect]
     Active Substance: VANCOMYCIN
     Indication: Staphylococcal infection
     Dosage: UNK
     Route: 065
     Dates: start: 202105, end: 20210602
  14. VANCOMYCIN [Suspect]
     Active Substance: VANCOMYCIN
     Dosage: UNK
     Route: 065
     Dates: start: 20210602, end: 20210616
  15. VANCOMYCIN [Suspect]
     Active Substance: VANCOMYCIN
     Dosage: UNK
     Route: 065
     Dates: start: 20210616, end: 20210624
  16. VORICONAZOLE [Suspect]
     Active Substance: VORICONAZOLE
     Indication: Bronchopulmonary aspergillosis
     Dosage: UNK
     Route: 065
     Dates: start: 202104
  17. VORICONAZOLE [Suspect]
     Active Substance: VORICONAZOLE
     Indication: Antifungal prophylaxis
     Dosage: UNK
     Route: 065
     Dates: start: 20210602, end: 20210616
  18. VORICONAZOLE [Suspect]
     Active Substance: VORICONAZOLE
     Dosage: UNK
     Route: 065
     Dates: start: 20210616, end: 20210624
  19. VORICONAZOLE [Suspect]
     Active Substance: VORICONAZOLE
     Dosage: UNK
     Route: 048
     Dates: start: 20210419, end: 20210602
  20. OXYGEN [Concomitant]
     Active Substance: OXYGEN
     Indication: Product used for unknown indication
     Dosage: UNK (LOW VOLUMES OF SUPPLEMENTARY OXYGEN, INTERMITTENTLY USED THROUGHOUT HOSPITAL STAY)
     Route: 065
     Dates: start: 20210426
  21. DEXAMETHASONE [Concomitant]
     Active Substance: DEXAMETHASONE
     Indication: Inflammation
     Dosage: 8 MILLIGRAM, ONCE A DAY (TAPERED UNTIL CESSATION 14 DAYS LATER)
     Route: 065
     Dates: start: 20210426
  22. DEXAMETHASONE [Concomitant]
     Active Substance: DEXAMETHASONE
     Dosage: 24 MILLIGRAM, ONCE A DAY (24 MG/DAY AT FIRST, TAPERED UNTIL CESSATION 14 DAYS LATER )
     Route: 042
     Dates: start: 20210426
  23. REMDESIVIR [Concomitant]
     Active Substance: REMDESIVIR
     Indication: Product used for unknown indication
     Dosage: FIVE-DAY COURSE
     Route: 065

REACTIONS (3)
  - Pulmonary mucormycosis [Recovered/Resolved]
  - Anaemia [Recovered/Resolved]
  - Drug ineffective [Unknown]

NARRATIVE: CASE EVENT DATE: 20210401
